FAERS Safety Report 19643120 (Version 1)
Quarter: 2021Q3

REPORT INFORMATION
  Report Type: Spontaneous
  Country: US (occurrence: US)
  Receive Date: 20210730
  Receipt Date: 20210730
  Transmission Date: 20211014
  Serious: No
  Sender: FDA-Public Use
  Company Number: US-BEH-2021134459

PATIENT
  Age: 83 Year
  Sex: Male
  Weight: 94.24 kg

DRUGS (4)
  1. ASPIRIN [ACETYLSALICYLIC ACID] [Concomitant]
     Active Substance: ASPIRIN
     Dosage: 81 MILLIGRAM, QD
  2. ZINC. [Concomitant]
     Active Substance: ZINC
     Dosage: 50 MILLIGRAM, QD
  3. HIZENTRA [Suspect]
     Active Substance: HUMAN IMMUNOGLOBULIN G
     Dosage: 12 GRAM (60 ML), QW
     Route: 042
  4. PROLASTIN [Concomitant]
     Active Substance: .ALPHA.1-PROTEINASE INHIBITOR HUMAN
     Dosage: UNK, QW

REACTIONS (6)
  - Abdominal distension [Unknown]
  - Myalgia [Unknown]
  - Sneezing [Unknown]
  - Incorrect route of product administration [Unknown]
  - Headache [Unknown]
  - Cough [Unknown]

NARRATIVE: CASE EVENT DATE: 202102
